FAERS Safety Report 20658286 (Version 2)
Quarter: 2023Q1

REPORT INFORMATION
  Report Type: Spontaneous
  Country: None (occurrence: US)
  Receive Date: 20220331
  Receipt Date: 20230113
  Transmission Date: 20230418
  Serious: Yes (Hospitalization)
  Sender: FDA-Public Use
  Company Number: US-Imprimis NJOF-2127274

PATIENT
  Sex: Female

DRUGS (1)
  1. MOXIFLOXACIN\NEPAFENAC\PREDNISOLONE ACETATE [Suspect]
     Active Substance: MOXIFLOXACIN\NEPAFENAC\PREDNISOLONE ACETATE
     Route: 047

REACTIONS (1)
  - Hypersensitivity [Unknown]
